FAERS Safety Report 11356674 (Version 1)
Quarter: 2015Q3

REPORT INFORMATION
  Report Type: Spontaneous
  Country: US (occurrence: US)
  Receive Date: 20150803
  Receipt Date: 20150803
  Transmission Date: 20151125
  Serious: No
  Sender: FDA-Public Use
  Company Number: US-ELI_LILLY_AND_COMPANY-US201208003361

PATIENT
  Age: 79 Year
  Sex: Female

DRUGS (2)
  1. ZYPREXA [Suspect]
     Active Substance: OLANZAPINE
     Indication: AGITATION
     Dosage: 5 MG, QD
  2. ZYPREXA [Suspect]
     Active Substance: OLANZAPINE
     Dosage: 1 DF, UNK

REACTIONS (5)
  - Constipation [Unknown]
  - Off label use [Not Recovered/Not Resolved]
  - Gait disturbance [Unknown]
  - Muscle rigidity [Unknown]
  - Dysstasia [Unknown]
